FAERS Safety Report 25525334 (Version 2)
Quarter: 2025Q3

REPORT INFORMATION
  Report Type: Spontaneous
  Country: JP (occurrence: JP)
  Receive Date: 20250707
  Receipt Date: 20250715
  Transmission Date: 20251020
  Serious: Yes (Other)
  Sender: FERRING
  Company Number: JP-ferring-EVA202500921FERRINGPH

PATIENT

DRUGS (1)
  1. NOCDURNA [Suspect]
     Active Substance: DESMOPRESSIN ACETATE
     Indication: Nocturia
     Dosage: 50 UG, DAILY (1 TABLET BEFORE BEDTIME)
     Route: 048

REACTIONS (1)
  - Pneumonia bacterial [Unknown]
